FAERS Safety Report 19271096 (Version 2)
Quarter: 2021Q3

REPORT INFORMATION
  Report Type: Report from Study
  Country: US (occurrence: US)
  Receive Date: 20210518
  Receipt Date: 20210914
  Transmission Date: 20211014
  Serious: Yes (Other)
  Sender: FDA-Public Use
  Company Number: US-JAZZ-2018-US-011046

PATIENT
  Sex: Male

DRUGS (2)
  1. XYREM [Suspect]
     Active Substance: SODIUM OXYBATE
     Dosage: 3 GRAM, BID
     Route: 048
  2. XYREM [Suspect]
     Active Substance: SODIUM OXYBATE
     Indication: NARCOLEPSY
     Dosage: 2.5 G, BID
     Route: 048
     Dates: start: 201807

REACTIONS (16)
  - Condition aggravated [Unknown]
  - Nasal congestion [Recovering/Resolving]
  - Tremor [Not Recovered/Not Resolved]
  - Pre-existing condition improved [Unknown]
  - Dehydration [Not Recovered/Not Resolved]
  - Fall [Unknown]
  - Gastrooesophageal reflux disease [Not Recovered/Not Resolved]
  - Lower respiratory tract congestion [Unknown]
  - Obsessive-compulsive disorder [Not Recovered/Not Resolved]
  - Irritable bowel syndrome [Unknown]
  - Balance disorder [Not Recovered/Not Resolved]
  - Bronchospasm [Unknown]
  - Memory impairment [Unknown]
  - Urethral intrinsic sphincter deficiency [Not Recovered/Not Resolved]
  - Dizziness [Unknown]
  - Epistaxis [Not Recovered/Not Resolved]

NARRATIVE: CASE EVENT DATE: 2018
